FAERS Safety Report 10285193 (Version 4)
Quarter: 2015Q1

REPORT INFORMATION
  Report Type: Report from Study
  Country: JP (occurrence: JP)
  Receive Date: 20140708
  Receipt Date: 20150323
  Transmission Date: 20150720
  Serious: Yes (Death)
  Sender: FDA-Public Use
  Company Number: JP-B.I. PHARMACEUTICALS,INC./RIDGEFIELD-2014-BI-24122NB

PATIENT
  Age: 61 Year
  Sex: Female
  Weight: 49.9 kg

DRUGS (2)
  1. GILOTRIF [Suspect]
     Active Substance: AFATINIB
     Indication: LUNG ADENOCARCINOMA
     Dosage: 40 MG
     Route: 048
     Dates: start: 20140517, end: 20140531
  2. MS CONTIN [Concomitant]
     Active Substance: MORPHINE SULFATE
     Indication: LUNG ADENOCARCINOMA
     Dosage: 20 MG
     Route: 048

REACTIONS (4)
  - Malignant neoplasm progression [Fatal]
  - Drug ineffective [Unknown]
  - Vomiting [Recovered/Resolved]
  - Stomatitis [Not Recovered/Not Resolved]

NARRATIVE: CASE EVENT DATE: 20140525
